FAERS Safety Report 4987857-0 (Version None)
Quarter: 2006Q2

REPORT INFORMATION
  Report Type: 
  Country: None (occurrence: None)
  Receive Date: 20060427
  Receipt Date: 20060427
  Transmission Date: 20061013
  Serious: Yes (Other)
  Sender: FDA-Public Use
  Company Number: None

PATIENT
  Sex: Male
  Weight: 81.6475 kg

DRUGS (1)
  1. MIRAPEX [Suspect]
     Indication: PARKINSON'S DISEASE
     Dosage: 1.0 MIL 3XDAY PO
     Route: 048
     Dates: start: 20030509, end: 20060417

REACTIONS (15)
  - ABNORMAL BEHAVIOUR [None]
  - ALCOHOL USE [None]
  - DEPRESSION [None]
  - DRUG ABUSER [None]
  - ECONOMIC PROBLEM [None]
  - HOSTILITY [None]
  - INSOMNIA [None]
  - JUDGEMENT IMPAIRED [None]
  - LEGAL PROBLEM [None]
  - OBSESSIVE-COMPULSIVE DISORDER [None]
  - PARTNER STRESS [None]
  - PERSONALITY CHANGE [None]
  - SEXUAL ACTIVITY INCREASED [None]
  - SOMNOLENCE [None]
  - THINKING ABNORMAL [None]
